FAERS Safety Report 5231312-X (Version None)
Quarter: 2007Q1

REPORT INFORMATION
  Report Type: 
  Country: None (occurrence: None)
  Receive Date: 20070205
  Receipt Date: 20070205
  Transmission Date: 20070707
  Serious: Yes (Hospitalization)
  Sender: FDA-Public Use
  Company Number: None

PATIENT
  Age: 50 Year
  Sex: Male
  Weight: 81.6 kg

DRUGS (1)
  1. PHENYTOIN [Suspect]

REACTIONS (3)
  - DIZZINESS [None]
  - SOMNOLENCE [None]
  - SPEECH DISORDER [None]
